FAERS Safety Report 9775277 (Version 2)
Quarter: 2014Q2

REPORT INFORMATION
  Report Type: Spontaneous
  Country: US (occurrence: US)
  Receive Date: 20131220
  Receipt Date: 20140408
  Transmission Date: 20141212
  Serious: Yes (Hospitalization, Other)
  Sender: FDA-Public Use
  Company Number: US-GILEAD-2013-0090269

PATIENT
  Age: 72 Year
  Sex: Female

DRUGS (5)
  1. LETAIRIS [Suspect]
     Indication: PULMONARY HYPERTENSION
     Dosage: 10 MG, UNK
     Route: 048
     Dates: start: 20120612
  2. ADCIRCA [Concomitant]
  3. ASA [Concomitant]
     Dosage: 81 MG, UNK
  4. CARVEDILOL [Concomitant]
  5. LOVENOX [Concomitant]
     Dosage: 100 MG/ML (DF), UNK

REACTIONS (2)
  - Pulmonary thrombosis [Recovered/Resolved]
  - Dyspnoea [Not Recovered/Not Resolved]
